FAERS Safety Report 6062912-5 (Version None)
Quarter: 2009Q1

REPORT INFORMATION
  Report Type: 
  Country: None (occurrence: None)
  Receive Date: 20090203
  Receipt Date: 20090123
  Transmission Date: 20090719
  Serious: Yes (Other)
  Sender: FDA-Public Use
  Company Number: US-JNJFOC-20090106333

PATIENT
  Sex: Female

DRUGS (9)
  1. REMICADE [Suspect]
     Route: 050
  2. REMICADE [Suspect]
     Route: 050
  3. REMICADE [Suspect]
     Route: 050
  4. REMICADE [Suspect]
     Route: 050
  5. REMICADE [Suspect]
     Indication: PATERNAL DRUGS AFFECTING FOETUS
     Route: 050
  6. 6-MERCEPTOPURINE [Concomitant]
  7. ANTIBIOTICS [Concomitant]
  8. PREDNISONE [Concomitant]
  9. PREDNISONE [Concomitant]

REACTIONS (2)
  - ABORTION SPONTANEOUS [None]
  - DRUG EXPOSURE BEFORE PREGNANCY [None]
